FAERS Safety Report 24032041 (Version 1)
Quarter: 2024Q2

REPORT INFORMATION
  Report Type: Spontaneous
  Country: GB (occurrence: GB)
  Receive Date: 20240630
  Receipt Date: 20240630
  Transmission Date: 20240716
  Serious: Yes (Hospitalization, Other)
  Sender: FDA-Public Use
  Company Number: GB-SANDOZ-SDZ2024GB006329

PATIENT

DRUGS (4)
  1. PREDNISOLONE [Suspect]
     Active Substance: PREDNISOLONE
     Indication: Immunosuppression
     Dosage: 5 MG, QD (TABLET, 5 MG, QD,28 STRIDE)
     Route: 048
  2. TACROLIMUS [Suspect]
     Active Substance: TACROLIMUS
     Indication: Immunosuppressant drug therapy
     Dosage: 2 MG, QD (1 MG, BID (STRENGTH: 1MG CAP 50))
     Route: 048
  3. TACROLIMUS [Suspect]
     Active Substance: TACROLIMUS
     Dosage: 0.75 MG (0.75MG CAPS 50)
  4. PREDNISOLONE [Concomitant]
     Active Substance: PREDNISOLONE
     Indication: Product used for unknown indication
     Dosage: 5 MG (5 MG TAB 28 STRIDE WITH BREAKFAST)
     Route: 048

REACTIONS (5)
  - Oxygen saturation decreased [Unknown]
  - Dysphagia [Unknown]
  - Coma [Unknown]
  - Cough [Unknown]
  - Fluid retention [Unknown]
